FAERS Safety Report 6106332-3 (Version None)
Quarter: 2009Q1

REPORT INFORMATION
  Report Type: 
  Country: None (occurrence: None)
  Receive Date: 20090306
  Receipt Date: 20090302
  Transmission Date: 20090719
  Serious: Yes (Death, Hospitalization, Other)
  Sender: FDA-Public Use
  Company Number: PHHY2008FR17507

PATIENT
  Sex: Female
  Weight: 55 kg

DRUGS (6)
  1. GLEEVEC [Suspect]
     Indication: SARCOMA
     Dosage: 400 MG DAILY
     Route: 048
     Dates: start: 20080425, end: 20080601
  2. GLEEVEC [Suspect]
     Indication: METASTASES TO BONE
     Dosage: 200 MG DAILY
     Route: 048
     Dates: start: 20080621
  3. GLEEVEC [Suspect]
     Indication: METASTASES TO LIVER
  4. LITHIUM [Concomitant]
     Indication: BIPOLAR DISORDER
     Dosage: 400 MG DAILY
     Route: 048
     Dates: start: 20080725
  5. ZOMETA [Concomitant]
     Indication: METASTASES TO BONE
     Dosage: 4 MG
     Dates: start: 20080701
  6. SOLU-MEDROL [Concomitant]
     Indication: PAIN
     Dosage: 60 MG DAILY
     Dates: start: 20080723

REACTIONS (12)
  - ACUTE PULMONARY OEDEMA [None]
  - ASPIRATION TRACHEAL [None]
  - ASTHENIA [None]
  - DEATH [None]
  - DYSPHAGIA [None]
  - DYSSTASIA [None]
  - ESCHERICHIA INFECTION [None]
  - GENERAL PHYSICAL HEALTH DETERIORATION [None]
  - HEPATIC MASS [None]
  - PULMONARY EMBOLISM [None]
  - SURGERY [None]
  - URINARY TRACT INFECTION [None]
